FAERS Safety Report 16238957 (Version 7)
Quarter: 2019Q2

REPORT INFORMATION
  Report Type: Spontaneous
  Country: US (occurrence: US)
  Receive Date: 20190425
  Receipt Date: 20190611
  Transmission Date: 20190711
  Serious: No
  Sender: FDA-Public Use
  Company Number: US-SA-2019SA110290

PATIENT
  Age: 25 Year
  Sex: Female
  Weight: 76.8 kg

DRUGS (2)
  1. RITUXAN [Concomitant]
     Active Substance: RITUXIMAB
     Route: 065
  2. CABLIVI [Suspect]
     Active Substance: CAPLACIZUMAB-YHDP
     Indication: THROMBOCYTOPENIA
     Dosage: 11 MG, QD
     Route: 058
     Dates: start: 201904

REACTIONS (7)
  - Injection site rash [Unknown]
  - Irritability [Unknown]
  - Hot flush [Recovered/Resolved]
  - Injection site pruritus [Unknown]
  - Headache [Unknown]
  - Platelet count abnormal [Unknown]
  - Fatigue [Unknown]

NARRATIVE: CASE EVENT DATE: 201904
